FAERS Safety Report 7774950-2 (Version None)
Quarter: 2011Q3

REPORT INFORMATION
  Report Type: 
  Country: None (occurrence: None)
  Receive Date: 20110923
  Receipt Date: 20110915
  Transmission Date: 20111222
  Serious: Yes (Hospitalization, Other)
  Sender: FDA-Public Use
  Company Number: PHHY2011US55491

PATIENT
  Age: 49 Year
  Sex: Female
  Weight: 59 kg

DRUGS (13)
  1. DIHYDROERGOTAMINE MESYLATE [Interacting]
     Dosage: 1 MG, UNK
     Route: 042
  2. VERAPAMIL [Interacting]
     Dosage: 180 MG, UNK
     Route: 048
  3. MORPHINE SULFATE [Concomitant]
     Dosage: 30 MG, UNK
  4. NICOTINE [Interacting]
     Indication: SMOKING CESSATION THERAPY
     Dosage: 7 MG, UNK
     Route: 062
  5. NATALIZUMAB [Concomitant]
  6. HALOPERIDOL [Concomitant]
     Dosage: 0.5 MG, UNK
  7. VERAPAMIL [Suspect]
     Indication: HYPERTENSION
     Dosage: 120 MG, UNK
     Route: 048
  8. GABAPENTIN [Concomitant]
  9. ACETAMINOPHEN AND HYDROCODONE BITARTRATE [Concomitant]
  10. AMANTADINE HCL [Concomitant]
  11. LORAZEPAM [Concomitant]
     Dosage: 1 MG, UNK
     Route: 048
  12. FENTANYL [Concomitant]
     Indication: PAIN
     Dosage: 12.5 MCG, UNK
  13. DULOXETIME HYDROCHLORIDE [Concomitant]

REACTIONS (10)
  - CARDIAC ENZYMES INCREASED [None]
  - VASOSPASM [None]
  - NAUSEA [None]
  - DRUG INTERACTION [None]
  - HEART RATE DECREASED [None]
  - MITRAL VALVE INCOMPETENCE [None]
  - PRINZMETAL ANGINA [None]
  - CHEST PAIN [None]
  - BLOOD PRESSURE DECREASED [None]
  - SOMNOLENCE [None]
